FAERS Safety Report 9715108 (Version 1)
Quarter: 2013Q4

REPORT INFORMATION
  Report Type: Spontaneous
  Country: US (occurrence: US)
  Receive Date: 20131126
  Receipt Date: 20131126
  Transmission Date: 20140711
  Serious: Yes (Hospitalization)
  Sender: FDA-Public Use
  Company Number: US-B.I. PHARMACEUTICALS,INC./RIDGEFIELD-2013-BI-38755BP

PATIENT
  Age: 63 Year
  Sex: Male

DRUGS (1)
  1. SPIRIVA [Suspect]
     Indication: CHRONIC OBSTRUCTIVE PULMONARY DISEASE
     Dosage: 18 MCG
     Route: 055
     Dates: start: 2008

REACTIONS (6)
  - Colon cancer [Unknown]
  - Rectal haemorrhage [Unknown]
  - Rectal lesion [Recovered/Resolved]
  - Septic shock [Recovered/Resolved]
  - Abdominal wound dehiscence [Recovered/Resolved]
  - Intestinal perforation [Unknown]
